FAERS Safety Report 4314606-1 (Version None)
Quarter: 2004Q1

REPORT INFORMATION
  Report Type: 
  Country: None (occurrence: None)
  Receive Date: 20040308
  Receipt Date: 20040226
  Transmission Date: 20041129
  Serious: Yes (Death)
  Sender: FDA-Public Use
  Company Number: 04H-066-0251615-00

PATIENT
  Sex: 0

DRUGS (5)
  1. LEUCOVORIN CALCIUM [Suspect]
     Indication: CHEMOTHERAPY
     Dosage: 200 MG/M2, OVER 2 HOURS, INTRAVENOUS
     Route: 042
  2. FLUOROURACIL [Suspect]
     Indication: CHEMOTHERAPY
     Dosage: 450 MG/KG, ONCE, AT THE END OF LEUCOVORIN, INTRAVENOUS BOLUS
     Route: 040
  3. IRINOTECAN [Suspect]
     Indication: CHEMOTHERAPY
     Dosage: 80 MG/KG, OVER 90 MINUTES, BEFORE LEUCOVORIN, INTRAVENOUS
     Route: 042
  4. SODIUM CHLORIDE INJ [Concomitant]
  5. DILUENT [Concomitant]

REACTIONS (4)
  - BACTERAEMIA [None]
  - DIARRHOEA [None]
  - FEBRILE NEUTROPENIA [None]
  - SEPSIS [None]
